FAERS Safety Report 22024819 (Version 1)
Quarter: 2023Q1

REPORT INFORMATION
  Report Type: Spontaneous
  Country: US (occurrence: None)
  Receive Date: 20230223
  Receipt Date: 20230223
  Transmission Date: 20230417
  Serious: No
  Sender: FDA-Public Use
  Company Number: US-ROCHE-3050317

PATIENT
  Sex: Female
  Weight: 77.180 kg

DRUGS (5)
  1. XOLAIR [Suspect]
     Active Substance: OMALIZUMAB
     Indication: Dermatitis atopic
     Dosage: FREQUENCY  - INJECT 2 MLS INTO THE SKINE + STRENGTH 150MG/ML
     Route: 058
     Dates: start: 20190404
  2. XOLAIR [Suspect]
     Active Substance: OMALIZUMAB
  3. XOLAIR [Suspect]
     Active Substance: OMALIZUMAB
  4. XOLAIR [Concomitant]
     Active Substance: OMALIZUMAB
     Route: 058
     Dates: start: 20190403
  5. DUPIXENT [Concomitant]
     Active Substance: DUPILUMAB
     Route: 058
     Dates: start: 20190403

REACTIONS (2)
  - Off label use [Unknown]
  - No adverse event [Unknown]
